FAERS Safety Report 6884981-2 (Version None)
Quarter: 2010Q3

REPORT INFORMATION
  Report Type: 
  Country: None (occurrence: None)
  Receive Date: 20100729
  Receipt Date: 20071010
  Transmission Date: 20110219
  Serious: Yes (Hospitalization, Other)
  Sender: FDA-Public Use
  Company Number: US-PFIZER INC-2007084588

PATIENT
  Age: 70 Year
  Sex: Female

DRUGS (11)
  1. CELECOXIB [Suspect]
  2. ALENDRONATE SODIUM [Suspect]
  3. PROPOXYPHENE NAPSYLATE [Concomitant]
  4. PHENOL [Concomitant]
  5. ENALAPRIL MALEATE [Concomitant]
  6. IBUPROFEN TABLETS [Concomitant]
  7. FLUTICASONE PROPIONATE [Concomitant]
  8. ALBUTEROL [Concomitant]
  9. RANITIDINE HYDROCHLORIDE [Concomitant]
  10. LEVOTHYROXINE SODIUM [Concomitant]
  11. ZOLPIDEM [Concomitant]

REACTIONS (1)
  - HIATUS HERNIA [None]
